FAERS Safety Report 19666493 (Version 1)
Quarter: 2021Q3

REPORT INFORMATION
  Report Type: Spontaneous
  Country: CA (occurrence: CA)
  Receive Date: 20210806
  Receipt Date: 20210806
  Transmission Date: 20211014
  Serious: Yes (Other)
  Sender: FDA-Public Use
  Company Number: CA-HLS-202108173

PATIENT
  Sex: Male

DRUGS (1)
  1. CLOZARIL [Suspect]
     Active Substance: CLOZAPINE
     Indication: SCHIZOAFFECTIVE DISORDER
     Dosage: 375MG DAILY
     Route: 065

REACTIONS (5)
  - Urinary tract infection [Unknown]
  - Delirium [Unknown]
  - Salivary hypersecretion [Unknown]
  - Aggression [Unknown]
  - Dizziness [Unknown]
